FAERS Safety Report 18419077 (Version 2)
Quarter: 2020Q4

REPORT INFORMATION
  Report Type: Report from Study
  Country: AU (occurrence: AU)
  Receive Date: 20201023
  Receipt Date: 20201102
  Transmission Date: 20210114
  Serious: Yes (Hospitalization)
  Sender: FDA-Public Use
  Company Number: AU-SA-2017SA080646

PATIENT

DRUGS (1)
  1. ALEMTUZUMAB [Suspect]
     Active Substance: ALEMTUZUMAB
     Indication: RELAPSING MULTIPLE SCLEROSIS
     Dosage: 12 MG,QD
     Route: 041
     Dates: start: 20170320, end: 20170324

REACTIONS (8)
  - Skin wound [Recovering/Resolving]
  - Cellulitis [Not Recovered/Not Resolved]
  - Viral infection [Recovered/Resolved]
  - Pyrexia [Recovered/Resolved]
  - Cellulitis gangrenous [Recovering/Resolving]
  - Type 2 diabetes mellitus [Not Recovered/Not Resolved]
  - Central pain syndrome [Not Recovered/Not Resolved]
  - Ureterolithiasis [Recovered/Resolved]

NARRATIVE: CASE EVENT DATE: 20170324
